FAERS Safety Report 7530235-0 (Version None)
Quarter: 2011Q2

REPORT INFORMATION
  Report Type: 
  Country: None (occurrence: None)
  Receive Date: 20110607
  Receipt Date: 20110523
  Transmission Date: 20111010
  Serious: Yes (Other)
  Sender: FDA-Public Use
  Company Number: US-BAYER-2011-045228

PATIENT
  Age: 71 Year
  Sex: Female
  Weight: 84 kg

DRUGS (3)
  1. BAYER WOMEN'S LOW STRENGTH ASPIRIN REGIMEN [Suspect]
     Indication: ISCHAEMIC HEART DISEASE PROPHYLAXIS
     Dosage: 1 DF, QD
     Route: 048
     Dates: start: 20110401, end: 20110522
  2. PLAVIX [Concomitant]
  3. WARFARIN SODIUM [Concomitant]
     Indication: ANTICOAGULANT THERAPY
     Dosage: UNK

REACTIONS (1)
  - GASTRIC HAEMORRHAGE [None]
